FAERS Safety Report 8414909-5 (Version None)
Quarter: 2012Q2

REPORT INFORMATION
  Report Type: 
  Country: None (occurrence: None)
  Receive Date: 20120601
  Receipt Date: 20120601
  Transmission Date: 20120825
  Serious: Yes (Life-Threatening)
  Sender: FDA-Public Use
  Company Number: None

PATIENT
  Age: 13 Month
  Sex: Male
  Weight: 12.5 kg

DRUGS (1)
  1. VANCOMYCIN [Suspect]
     Indication: PYREXIA
     Dosage: 180 MG Q8H IV   5 DOSES
     Route: 042
     Dates: start: 20120512, end: 20120514

REACTIONS (4)
  - ADENOVIRUS TEST POSITIVE [None]
  - NEUTROPENIA [None]
  - STAPHYLOCOCCUS TEST POSITIVE [None]
  - CULTURE URINE POSITIVE [None]
